FAERS Safety Report 6204484-8 (Version None)
Quarter: 2009Q2

REPORT INFORMATION
  Report Type: 
  Country: None (occurrence: None)
  Receive Date: 20090527
  Receipt Date: 20090515
  Transmission Date: 20091009
  Serious: Yes (Death)
  Sender: FDA-Public Use
  Company Number: US-PFIZER INC-2009207194

PATIENT
  Sex: Male

DRUGS (1)
  1. CAMPTOSAR [Suspect]
     Dosage: 340 MG, UNK

REACTIONS (4)
  - CEREBRAL HAEMORRHAGE [None]
  - HYDROCEPHALUS [None]
  - METASTASES TO CENTRAL NERVOUS SYSTEM [None]
  - RESPIRATORY FAILURE [None]
